FAERS Safety Report 12121193 (Version 1)
Quarter: 2016Q1

REPORT INFORMATION
  Report Type: Spontaneous
  Country: JP (occurrence: JP)
  Receive Date: 20160226
  Receipt Date: 20160226
  Transmission Date: 20160526
  Serious: Yes (Hospitalization)
  Sender: FDA-Public Use
  Company Number: JP-AMGEN-JPNSP2016023649

PATIENT
  Age: 50 Year
  Sex: Female
  Weight: 44 kg

DRUGS (10)
  1. PREDONINE [Concomitant]
     Active Substance: PREDNISOLONE\PREDNISOLONE ACETATE\PREDNISOLONE SODIUM SUCCINATE
     Dosage: 7 MG, UNK
     Route: 048
  2. LOXONIN [Concomitant]
     Active Substance: LOXOPROFEN SODIUM
     Dosage: 120 MG, UNK
     Route: 048
  3. FOLIAMIN [Concomitant]
     Active Substance: FOLIC ACID
     Dosage: 5 MG, QWK
     Route: 048
  4. REMICADE [Concomitant]
     Active Substance: INFLIXIMAB
     Dosage: 300 MG, UNK
     Route: 041
     Dates: start: 201404
  5. GASTER [Concomitant]
     Active Substance: FAMOTIDINE
     Dosage: 20 MG, UNK
     Route: 048
  6. EDIROL [Concomitant]
     Active Substance: ELDECALCITOL
     Dosage: 0.75 MUG, UNK
     Route: 048
  7. PRALIA [Suspect]
     Active Substance: DENOSUMAB
     Indication: OSTEOPOROSIS
     Dosage: 60 MG, Q6MO
     Route: 058
     Dates: start: 20150309, end: 20150914
  8. RHEUMATREX [Concomitant]
     Active Substance: METHOTREXATE SODIUM
     Dosage: 8 MG, QWK
     Route: 048
  9. SELBEX [Concomitant]
     Active Substance: TEPRENONE
     Dosage: 50 MG, UNK
     Route: 048
  10. BREDININ [Concomitant]
     Active Substance: MIZORIBINE
     Dosage: 450 MUG, QWK
     Route: 048
     Dates: start: 201404

REACTIONS (1)
  - Atypical femur fracture [Not Recovered/Not Resolved]

NARRATIVE: CASE EVENT DATE: 20160108
